FAERS Safety Report 6821127-0 (Version None)
Quarter: 2010Q3

REPORT INFORMATION
  Report Type: 
  Country: None (occurrence: None)
  Receive Date: 20100707
  Receipt Date: 20080303
  Transmission Date: 20110219
  Serious: No
  Sender: FDA-Public Use
  Company Number: US-PFIZER INC-2008020686

PATIENT
  Sex: Female

DRUGS (1)
  1. ZOLOFT [Suspect]

REACTIONS (7)
  - ANXIETY [None]
  - DECREASED APPETITE [None]
  - DRUG DOSE OMISSION [None]
  - MALAISE [None]
  - NERVOUSNESS [None]
  - TREMOR [None]
  - UNEVALUABLE EVENT [None]
